FAERS Safety Report 7098367 (Version 49)
Quarter: 2015Q4

REPORT INFORMATION
  Report Type: Report from Study
  Country: CA (occurrence: CA)
  Receive Date: 20090827
  Receipt Date: 20151125
  Transmission Date: 20160305
  Serious: Yes (Death, Hospitalization, Other)
  Sender: FDA-Public Use
  Company Number: PHHY2008CA01846

PATIENT
  Age: 47 Year
  Sex: Female

DRUGS (20)
  1. TETANUS VACCINE [Concomitant]
     Active Substance: CLOSTRIDIUM TETANI TOXOID ANTIGEN (FORMALDEHYDE INACTIVATED)
     Indication: PROPHYLAXIS
     Route: 065
     Dates: start: 20131012
  2. OXYIR [Concomitant]
     Active Substance: OXYCODONE HYDROCHLORIDE
     Indication: PRODUCT USED FOR UNKNOWN INDICATION
     Dosage: 5 MG, PRN
     Route: 065
  3. SANDOSTATIN LAR DEPOT [Suspect]
     Active Substance: OCTREOTIDE ACETATE
     Dosage: 20 MG, QMO (EVERY 4 WEEKS)
     Route: 030
     Dates: end: 20140910
  4. SANDOSTATIN LAR DEPOT [Suspect]
     Active Substance: OCTREOTIDE ACETATE
     Indication: CARCINOID TUMOUR
     Dosage: 30 MG, QMO/EVERY 4 WEEKS
     Route: 030
     Dates: start: 20050222
  5. NOVOLIN [Concomitant]
     Active Substance: INSULIN HUMAN
     Indication: PRODUCT USED FOR UNKNOWN INDICATION
     Route: 065
  6. AMITRIPTYLINE [Concomitant]
     Active Substance: AMITRIPTYLINE
     Indication: PRODUCT USED FOR UNKNOWN INDICATION
     Dosage: 10 MG, BID
     Route: 048
  7. MORPHINE [Concomitant]
     Active Substance: MORPHINE
     Dosage: 120 MG, QD
     Route: 065
  8. MORPHINE [Concomitant]
     Active Substance: MORPHINE
     Dosage: 2 OR 3 PILLS, A DAY
     Route: 065
  9. MORPHINE [Concomitant]
     Active Substance: MORPHINE
     Dosage: 75 MG, TID
     Route: 065
  10. PARIET [Concomitant]
     Active Substance: RABEPRAZOLE SODIUM
     Indication: PRODUCT USED FOR UNKNOWN INDICATION
     Dosage: 10 MG, QD
     Route: 048
  11. MORPHINE [Concomitant]
     Active Substance: MORPHINE
     Indication: INSOMNIA
     Dosage: 75 MG, TID
     Route: 065
  12. MORPHINE [Concomitant]
     Active Substance: MORPHINE
     Dosage: 12 PILLS, A DAY 94 MORPHINE PILLS IN THE MORNING, 4 PILLS IN AFTERNOON, 4 PILLS AT NIGHT
     Route: 065
  13. SANDOSTATIN LAR DEPOT [Suspect]
     Active Substance: OCTREOTIDE ACETATE
     Dosage: 30 MG, QMO/EVERY 28 DAYS
     Route: 030
     Dates: end: 20151023
  14. GABAPENTINE [Concomitant]
     Active Substance: GABAPENTIN
     Indication: NEURALGIA
     Dosage: 400 MG, TID
     Route: 048
  15. OLANZAPINE. [Concomitant]
     Active Substance: OLANZAPINE
     Indication: PRODUCT USED FOR UNKNOWN INDICATION
     Route: 065
  16. NORTRIPTYLINE [Concomitant]
     Active Substance: NORTRIPTYLINE
     Indication: PRODUCT USED FOR UNKNOWN INDICATION
     Dosage: 10 MG, UNK
     Route: 065
  17. LOSEC [Concomitant]
     Active Substance: OMEPRAZOLE
     Indication: PRODUCT USED FOR UNKNOWN INDICATION
     Dosage: 10 MG, QD
     Route: 048
  18. THYROXINE [Concomitant]
     Active Substance: LEVOTHYROXINE
     Indication: PRODUCT USED FOR UNKNOWN INDICATION
     Dosage: 0.2 MG, QD
     Route: 048
  19. OXYCODONE HYDROCHLORIDE AND ACETAMINOPHEN [Concomitant]
     Active Substance: ACETAMINOPHEN\OXYCODONE HYDROCHLORIDE
     Indication: PRODUCT USED FOR UNKNOWN INDICATION
     Dosage: 5 MG/325 MG, UNK
     Route: 048
  20. VENTOLINE [Concomitant]
     Active Substance: ALBUTEROL
     Indication: PRODUCT USED FOR UNKNOWN INDICATION
     Dosage: 2 DF, QID (PUFFER 2 INHALATION TID/QID)
     Route: 055

REACTIONS (62)
  - Amnesia [Unknown]
  - Skin depigmentation [Unknown]
  - Injury associated with device [Unknown]
  - Alopecia [Unknown]
  - Abdominal pain upper [Unknown]
  - Injection site haemorrhage [Unknown]
  - Weight decreased [Unknown]
  - Blood pressure increased [Unknown]
  - Haematemesis [Unknown]
  - Diabetes mellitus [Unknown]
  - Feeling cold [Recovered/Resolved]
  - Feeling hot [Unknown]
  - Incoherent [Unknown]
  - Constipation [Unknown]
  - Nausea [Unknown]
  - Rash [Unknown]
  - Immune system disorder [Unknown]
  - Dental caries [Unknown]
  - Malaise [Unknown]
  - Insomnia [Unknown]
  - Labile blood pressure [Unknown]
  - Sleep disorder [Unknown]
  - Gait disturbance [Unknown]
  - Tooth discolouration [Unknown]
  - Confusional state [Unknown]
  - Memory impairment [Unknown]
  - Agitation [Unknown]
  - Anxiety [Unknown]
  - Stress [Unknown]
  - Injection site pain [Unknown]
  - Pneumonia [Unknown]
  - Pharyngitis streptococcal [Unknown]
  - Pruritus [Unknown]
  - Overdose [Unknown]
  - Hyperkeratosis [Unknown]
  - Hyperhidrosis [Unknown]
  - Malabsorption from injection site [Unknown]
  - Peripheral swelling [Recovered/Resolved]
  - Somnolence [Unknown]
  - Irritability [Unknown]
  - Breast mass [Recovering/Resolving]
  - Gingival disorder [Unknown]
  - Heart rate increased [Unknown]
  - Vomiting [Unknown]
  - Injection site mass [Unknown]
  - Musculoskeletal discomfort [Unknown]
  - Rhinorrhoea [Unknown]
  - Visual acuity reduced [Unknown]
  - Breast cyst [Recovering/Resolving]
  - Death [Fatal]
  - Nasopharyngitis [Unknown]
  - Pyrexia [Unknown]
  - Contusion [Not Recovered/Not Resolved]
  - Hypoaesthesia [Recovered/Resolved]
  - Haemorrhage [Unknown]
  - Disturbance in attention [Unknown]
  - Pain in extremity [Unknown]
  - Breast pain [Unknown]
  - Fear of death [Unknown]
  - Neuralgia [Unknown]
  - Diarrhoea [Unknown]
  - Fatigue [Unknown]

NARRATIVE: CASE EVENT DATE: 20131012
